FAERS Safety Report 8958493 (Version 1)
Quarter: 2012Q4

REPORT INFORMATION
  Report Type: Spontaneous
  Country: US (occurrence: None)
  Receive Date: 20121205
  Receipt Date: 20121205
  Transmission Date: 20130627
  Serious: Yes (Other)
  Sender: FDA-Public Use
  Company Number: None

PATIENT
  Sex: Female
  Weight: 54.43 kg

DRUGS (1)
  1. VESICARE SEE INFORMATION ON PAPER [Suspect]

REACTIONS (3)
  - Product container seal issue [None]
  - Abnormal dreams [None]
  - Constipation [None]
